FAERS Safety Report 22084551 (Version 9)
Quarter: 2024Q2

REPORT INFORMATION
  Report Type: Spontaneous
  Country: US (occurrence: US)
  Receive Date: 20230310
  Receipt Date: 20240502
  Transmission Date: 20240715
  Serious: No
  Sender: FDA-Public Use
  Company Number: US-PFIZER INC-PV202300041543

PATIENT
  Age: 64 Year
  Sex: Female

DRUGS (5)
  1. IBRANCE [Suspect]
     Active Substance: PALBOCICLIB
     Dosage: DAILY ON DAYS 1-21 OF 28 DAYS CYCLE FOR 126 DAYS TAKE WITH FOOD
     Route: 048
  2. XANAX [Concomitant]
     Active Substance: ALPRAZOLAM
     Indication: Sleep disorder
     Dosage: NIGHTLY
     Route: 048
  3. NEURONTIN [Concomitant]
     Active Substance: GABAPENTIN
     Dosage: TAKE 1 CAPSULE BY MOUTH ONCE DAILY FOR 1 DAY
     Route: 048
  4. NEURONTIN [Concomitant]
     Active Substance: GABAPENTIN
     Dosage: THEN 1 CAPSULE 2 TIMES DAILY FOR 1 DAY
  5. NEURONTIN [Concomitant]
     Active Substance: GABAPENTIN
     Dosage: THEN 1 CAPSULE 3 TIMES DAILY FOR 28 DAYS

REACTIONS (9)
  - Fatigue [Unknown]
  - Dry eye [Unknown]
  - Constipation [Unknown]
  - Diarrhoea [Unknown]
  - Full blood count abnormal [Unknown]
  - Feeling abnormal [Unknown]
  - Headache [Unknown]
  - Gastrointestinal motility disorder [Unknown]
  - Hot flush [Unknown]

NARRATIVE: CASE EVENT DATE: 20230601
